FAERS Safety Report 7723512-1 (Version None)
Quarter: 2011Q3

REPORT INFORMATION
  Report Type: 
  Country: None (occurrence: None)
  Receive Date: 20110901
  Receipt Date: 20110825
  Transmission Date: 20111222
  Serious: Yes (Other)
  Sender: FDA-Public Use
  Company Number: CA-JNJFOC-20100809087

PATIENT
  Sex: Female
  Weight: 60 kg

DRUGS (4)
  1. REMICADE [Suspect]
     Indication: CROHN'S DISEASE
     Route: 042
     Dates: start: 20090922
  2. REMICADE [Suspect]
     Route: 042
     Dates: start: 20100614
  3. VITAMIN D [Concomitant]
  4. REMICADE [Suspect]
     Route: 042
     Dates: start: 20100826

REACTIONS (6)
  - INFUSION RELATED REACTION [None]
  - BALANCE DISORDER [None]
  - DYSPNOEA [None]
  - RESTLESSNESS [None]
  - HEADACHE [None]
  - HYPERTENSION [None]
